FAERS Safety Report 18485894 (Version 1)
Quarter: 2020Q4

REPORT INFORMATION
  Report Type: Spontaneous
  Country: US (occurrence: US)
  Receive Date: 20201110
  Receipt Date: 20201110
  Transmission Date: 20210114
  Serious: Yes (Other)
  Sender: FDA-Public Use
  Company Number: None

PATIENT
  Age: 65 Year
  Sex: Female
  Weight: 40.82 kg

DRUGS (12)
  1. ATENOLOL. [Concomitant]
     Active Substance: ATENOLOL
  2. CAPECITABINE. [Suspect]
     Active Substance: CAPECITABINE
     Indication: COLON CANCER
     Route: 048
     Dates: start: 20201022
  3. CAPECITABINE. [Suspect]
     Active Substance: CAPECITABINE
     Indication: COLON CANCER
     Route: 048
     Dates: start: 20200819
  4. FLUOROURACIL. [Concomitant]
     Active Substance: FLUOROURACIL
  5. PROCHLORPERAZINE. [Concomitant]
     Active Substance: PROCHLORPERAZINE
  6. TRAMADOL. [Concomitant]
     Active Substance: TRAMADOL
  7. BEVACIZUMAB. [Concomitant]
     Active Substance: BEVACIZUMAB
  8. ROSUVASTATIN. [Concomitant]
     Active Substance: ROSUVASTATIN
  9. HEPARIN [Concomitant]
     Active Substance: HEPARIN SODIUM
  10. MULTIVITAMIN [Concomitant]
     Active Substance: VITAMINS
  11. ONDANSETRON [Concomitant]
     Active Substance: ONDANSETRON
  12. AMBIEN [Concomitant]
     Active Substance: ZOLPIDEM TARTRATE

REACTIONS (2)
  - Paraesthesia [None]
  - Dry skin [None]

NARRATIVE: CASE EVENT DATE: 20201110
